FAERS Safety Report 26077965 (Version 1)
Quarter: 2025Q4

REPORT INFORMATION
  Report Type: Spontaneous
  Country: US (occurrence: US)
  Receive Date: 20251122
  Receipt Date: 20251122
  Transmission Date: 20260117
  Serious: No
  Sender: MDD OPERATIONS
  Company Number: US-MDD US Operations-MDD202510-004371

PATIENT
  Age: 72 Year
  Sex: Female

DRUGS (3)
  1. ONAPGO [Suspect]
     Active Substance: APOMORPHINE HYDROCHLORIDE
     Indication: Parkinson^s disease
     Dosage: CONTINUOUS INFUSION
     Dates: start: 20251009
  2. ONAPGO [Suspect]
     Active Substance: APOMORPHINE HYDROCHLORIDE
     Indication: On and off phenomenon
     Dosage: CONTINUOUS INFUSION
  3. ONAPGO [Suspect]
     Active Substance: APOMORPHINE HYDROCHLORIDE
     Dosage: NOT PROVIDED
     Route: 058
     Dates: start: 202510

REACTIONS (6)
  - Candida infection [Unknown]
  - Dermatitis contact [Unknown]
  - Infusion site erythema [Recovering/Resolving]
  - Infusion site nodule [Unknown]
  - Infusion site pruritus [Recovering/Resolving]
  - Infusion site irritation [Recovering/Resolving]

NARRATIVE: CASE EVENT DATE: 20251027
